FAERS Safety Report 21224002 (Version 1)
Quarter: 2022Q3

REPORT INFORMATION
  Report Type: Spontaneous
  Country: US (occurrence: US)
  Receive Date: 20220817
  Receipt Date: 20220817
  Transmission Date: 20221027
  Serious: No
  Sender: FDA-Public Use
  Company Number: US-SA-2022MK000019

PATIENT
  Age: 25 Year
  Sex: Male
  Weight: 70.370 kg

DRUGS (4)
  1. AFREZZA [Suspect]
     Active Substance: INSULIN HUMAN
     Indication: Type 1 diabetes mellitus
     Dates: start: 202112
  2. AFREZZA [Suspect]
     Active Substance: INSULIN HUMAN
     Dates: start: 202112
  3. TOUJEO [Concomitant]
     Active Substance: INSULIN GLARGINE
     Indication: Type 1 diabetes mellitus
     Route: 058
     Dates: start: 202110
  4. HUMALOG [Concomitant]
     Active Substance: INSULIN LISPRO
     Indication: Type 1 diabetes mellitus
     Dosage: 1 UNIT FOR EVERY 20 G OF CARBOHYDRATES
     Dates: start: 202110

REACTIONS (1)
  - Hypoglycaemia [Unknown]
